FAERS Safety Report 11467141 (Version 1)
Quarter: 2015Q3

REPORT INFORMATION
  Report Type: Spontaneous
  Country: FR (occurrence: FR)
  Receive Date: 20150908
  Receipt Date: 20150908
  Transmission Date: 20151125
  Serious: Yes (Hospitalization)
  Sender: FDA-Public Use
  Company Number: FR-ROCHE-1631293

PATIENT
  Age: 79 Year
  Sex: Female

DRUGS (5)
  1. FUNGIZONE [Concomitant]
     Active Substance: AMPHOTERICIN B
     Indication: ORAL FUNGAL INFECTION
     Route: 048
     Dates: start: 20150720, end: 20150726
  2. CEFPODOXIME [Concomitant]
     Active Substance: CEFPODOXIME
     Indication: LUNG INFECTION
  3. ROCEPHINE [Suspect]
     Active Substance: CEFTRIAXONE SODIUM
     Indication: LUNG INFECTION
     Route: 048
     Dates: start: 20150626, end: 20150701
  4. RULID [Suspect]
     Active Substance: ROXITHROMYCIN
     Indication: LUNG INFECTION
     Route: 048
     Dates: start: 20150702, end: 20150712
  5. PURINETHOL [Suspect]
     Active Substance: MERCAPTOPURINE
     Indication: CROHN^S DISEASE
     Dosage: 100 MG
     Route: 048
     Dates: start: 20141001, end: 20150726

REACTIONS (3)
  - Hepatocellular injury [Recovering/Resolving]
  - Cholestasis [Recovering/Resolving]
  - Jaundice [Recovering/Resolving]

NARRATIVE: CASE EVENT DATE: 20150726
